FAERS Safety Report 8275610-4 (Version None)
Quarter: 2012Q2

REPORT INFORMATION
  Report Type: 
  Country: None (occurrence: None)
  Receive Date: 20120412
  Receipt Date: 20120404
  Transmission Date: 20120825
  Serious: No
  Sender: FDA-Public Use
  Company Number: US-BIOGENIDEC-2012BI011616

PATIENT
  Age: 51 Year
  Sex: Male

DRUGS (1)
  1. AVONEX [Suspect]
     Indication: MULTIPLE SCLEROSIS
     Route: 030
     Dates: start: 20111101

REACTIONS (6)
  - ABDOMINAL PAIN [None]
  - NAUSEA [None]
  - RETCHING [None]
  - APHAGIA [None]
  - CHILLS [None]
  - PAIN [None]
